FAERS Safety Report 5520822-3 (Version None)
Quarter: 2007Q4

REPORT INFORMATION
  Report Type: 
  Country: None (occurrence: None)
  Receive Date: 20071116
  Receipt Date: 20071116
  Transmission Date: 20080405
  Serious: Yes (Hospitalization)
  Sender: FDA-Public Use
  Company Number: None

PATIENT
  Sex: Female
  Weight: 57.2 kg

DRUGS (1)
  1. CETUXIMAB [Suspect]
     Indication: ADENOCARCINOMA PANCREAS
     Dosage: 420 MG WEEKLY IV
     Route: 042
     Dates: start: 20070816, end: 20071107

REACTIONS (3)
  - ABDOMINAL PAIN [None]
  - PYREXIA [None]
  - TACHYCARDIA [None]
